FAERS Safety Report 4651058-6 (Version None)
Quarter: 2005Q2

REPORT INFORMATION
  Report Type: 
  Country: None (occurrence: None)
  Receive Date: 20050503
  Receipt Date: 20050425
  Transmission Date: 20051028
  Serious: Yes (Hospitalization)
  Sender: FDA-Public Use
  Company Number: PHEH2005US04748

PATIENT
  Age: 40 Year
  Sex: Female

DRUGS (3)
  1. CARBAMAZEPINE [Suspect]
     Indication: MIGRAINE
     Dosage: 200 MG, BID
     Route: 048
     Dates: start: 20050401, end: 20050406
  2. PREDNISONE TAB [Suspect]
     Indication: MIGRAINE
     Dosage: 30 MG, BID
     Route: 048
     Dates: start: 20050401, end: 20050403
  3. ORAL CONTRACEPTIVE NOS [Concomitant]

REACTIONS (2)
  - EYE SWELLING [None]
  - HERPES ZOSTER [None]
